FAERS Safety Report 16920719 (Version 1)
Quarter: 2019Q4

REPORT INFORMATION
  Report Type: Spontaneous
  Country: US (occurrence: US)
  Receive Date: 20191015
  Receipt Date: 20191015
  Transmission Date: 20200122
  Serious: No
  Sender: FDA-Public Use
  Company Number: US-BAUSCH-BL-2019-055493

PATIENT
  Sex: Female

DRUGS (1)
  1. LUMIFY [Suspect]
     Active Substance: BRIMONIDINE TARTRATE
     Indication: OCULAR HYPERAEMIA
     Dosage: ONE DROP INTO BOTH EYES (FIRST TIME)
     Route: 047
     Dates: start: 20190925

REACTIONS (1)
  - Metamorphopsia [Recovering/Resolving]

NARRATIVE: CASE EVENT DATE: 20190925
